FAERS Safety Report 7341263-2 (Version None)
Quarter: 2011Q1

REPORT INFORMATION
  Report Type: 
  Country: None (occurrence: None)
  Receive Date: 20110309
  Receipt Date: 20110225
  Transmission Date: 20110831
  Serious: Yes (Hospitalization, Other)
  Sender: FDA-Public Use
  Company Number: PHHY2010JP81929

PATIENT
  Sex: Male

DRUGS (14)
  1. PURSENNID [Concomitant]
     Indication: METASTASES TO THORAX
     Dosage: 24 MG, UNK
     Route: 048
     Dates: start: 20100624
  2. FERROUS CITRATE [Concomitant]
     Indication: METASTASES TO THORAX
     Dosage: 100 MG, UNK
     Route: 048
     Dates: start: 20100408
  3. SUNITINIB MALATE [Concomitant]
     Indication: RENAL CELL CARCINOMA
     Dosage: 50 MG, UNK
     Route: 048
     Dates: start: 20090302, end: 20090528
  4. OXINORM [Concomitant]
     Indication: RENAL CELL CARCINOMA
     Dosage: 5 MG, UNK
     Route: 048
     Dates: start: 20090408
  5. LAXOBERON [Concomitant]
     Indication: RENAL CELL CARCINOMA
     Dosage: 10 ML, UNK
     Route: 048
     Dates: start: 20100624
  6. CYTOTEC [Concomitant]
     Indication: METASTASES TO THORAX
     Dosage: 600 MG, UNK
     Route: 048
     Dates: start: 20090407
  7. OXYCONTIN [Concomitant]
     Indication: METASTASES TO THORAX
     Dosage: 40 MG, UNK
     Route: 048
     Dates: start: 20090408
  8. NAUZELIN [Concomitant]
     Indication: METASTASES TO THORAX
     Dosage: 30 MG, UNK
     Route: 048
     Dates: start: 20100527
  9. SORAFENIB TOSILATE [Concomitant]
     Indication: RENAL CELL CARCINOMA
     Dosage: 800 MG, UNK
     Route: 048
     Dates: start: 20090723, end: 20100527
  10. CELECOXIB [Suspect]
     Indication: METASTASES TO THORAX
     Dosage: 200 MG, DAILY
     Route: 048
     Dates: start: 20100527
  11. FAMOTIDINE [Concomitant]
     Indication: METASTASES TO THORAX
     Dosage: 40 MG, UNK
     Route: 048
     Dates: start: 20090625
  12. AFINITOR [Suspect]
     Indication: RENAL CELL CARCINOMA
     Dosage: 10 MG, DAILY
     Route: 048
     Dates: start: 20100624, end: 20100713
  13. AFINITOR [Suspect]
     Dosage: 10 MG, UNK
     Route: 048
     Dates: start: 20100902, end: 20100916
  14. ADALAT CC [Concomitant]
     Indication: METASTASES TO THORAX
     Dosage: 40 MG, UNK
     Route: 048
     Dates: start: 20091008

REACTIONS (2)
  - NEOPLASM MALIGNANT [None]
  - GASTROINTESTINAL PERFORATION [None]
